FAERS Safety Report 5367434-2 (Version None)
Quarter: 2007Q2

REPORT INFORMATION
  Report Type: 
  Country: None (occurrence: None)
  Receive Date: 20070622
  Receipt Date: 20060721
  Transmission Date: 20071010
  Serious: No
  Sender: FDA-Public Use
  Company Number: US-ASTRAZENECA-2006UW14912

PATIENT
  Age: 3 Year
  Sex: Male

DRUGS (1)
  1. PULMICORT RESPULES [Suspect]
     Dosage: .25 .5 DIVIDED DOSES
     Route: 055

REACTIONS (1)
  - CORNEAL THINNING [None]
